FAERS Safety Report 13075609 (Version 1)
Quarter: 2016Q4

REPORT INFORMATION
  Report Type: Report from Study
  Country: IT (occurrence: IT)
  Receive Date: 20161230
  Receipt Date: 20161230
  Transmission Date: 20170207
  Serious: Yes (Other)
  Sender: FDA-Public Use
  Company Number: IT-BAYER-2016-243424

PATIENT
  Sex: Female

DRUGS (1)
  1. CARDIOASPIRIN [LOW DOSE ASPIRIN] [Suspect]
     Active Substance: ASPIRIN
     Dosage: UNK
     Route: 064

REACTIONS (2)
  - Exposure during pregnancy [None]
  - Premature delivery [None]
